FAERS Safety Report 15863909 (Version 1)
Quarter: 2019Q1

REPORT INFORMATION
  Report Type: Spontaneous
  Country: GB (occurrence: GB)
  Receive Date: 20190124
  Receipt Date: 20190124
  Transmission Date: 20190417
  Serious: Yes (Life-Threatening, Hospitalization)
  Sender: FDA-Public Use
  Company Number: GB-FRESENIUS KABI-FK201900655

PATIENT
  Age: 79 Year
  Sex: Female
  Weight: 86 kg

DRUGS (2)
  1. ROCURONIUM [Suspect]
     Active Substance: ROCURONIUM BROMIDE
     Indication: ANAESTHESIA
     Route: 042
     Dates: start: 20181102, end: 20181102
  2. AMOXICILLIN SODIUM/CLAVULANATE POTASSIUM [Suspect]
     Active Substance: AMOXICILLIN\CLAVULANATE POTASSIUM
     Indication: ANTIBIOTIC PROPHYLAXIS
     Route: 042
     Dates: start: 20181102, end: 20181102

REACTIONS (3)
  - Cardiac arrest [Unknown]
  - Anaphylactic reaction [Recovered/Resolved]
  - Pulseless electrical activity [Unknown]

NARRATIVE: CASE EVENT DATE: 20181102
